FAERS Safety Report 24892944 (Version 1)
Quarter: 2025Q1

REPORT INFORMATION
  Report Type: Spontaneous
  Country: JO (occurrence: JO)
  Receive Date: 20250128
  Receipt Date: 20250128
  Transmission Date: 20250409
  Serious: Yes (Death, Life-Threatening, Hospitalization, Other)
  Sender: Steriscience PTE
  Company Number: JO-STERISCIENCE B.V.-2025-ST-000130

PATIENT
  Age: 47 Year
  Sex: Female

DRUGS (10)
  1. METOPROLOL [Suspect]
     Active Substance: METOPROLOL
     Indication: Cardiac amyloidosis
     Route: 065
  2. METOPROLOL [Suspect]
     Active Substance: METOPROLOL
     Indication: Cardiac failure
  3. SPIRONOLACTONE [Suspect]
     Active Substance: SPIRONOLACTONE
     Indication: Cardiac amyloidosis
     Route: 065
  4. SPIRONOLACTONE [Suspect]
     Active Substance: SPIRONOLACTONE
     Indication: Cardiac failure
  5. FUROSEMIDE [Suspect]
     Active Substance: FUROSEMIDE
     Indication: Cardiac amyloidosis
     Route: 065
  6. FUROSEMIDE [Suspect]
     Active Substance: FUROSEMIDE
     Indication: Cardiac failure
  7. DIFLUNISAL [Suspect]
     Active Substance: DIFLUNISAL
     Indication: Cardiac amyloidosis
     Route: 065
  8. DIFLUNISAL [Suspect]
     Active Substance: DIFLUNISAL
     Indication: Cardiac failure
  9. TAFAMIDIS [Suspect]
     Active Substance: TAFAMIDIS
     Indication: Cardiac amyloidosis
     Route: 065
  10. TAFAMIDIS [Suspect]
     Active Substance: TAFAMIDIS
     Indication: Cardiac failure

REACTIONS (2)
  - Condition aggravated [Fatal]
  - Off label use [Unknown]
